FAERS Safety Report 6533177-2 (Version None)
Quarter: 2010Q1

REPORT INFORMATION
  Report Type: 
  Country: None (occurrence: None)
  Receive Date: 20100111
  Receipt Date: 20100105
  Transmission Date: 20100710
  Serious: Yes (Hospitalization)
  Sender: FDA-Public Use
  Company Number: FR-BRISTOL-MYERS SQUIBB COMPANY-14924617

PATIENT
  Age: 86 Year
  Sex: Male

DRUGS (6)
  1. APROVEL TABS 75 MG [Suspect]
     Route: 048
     Dates: start: 20090730, end: 20091006
  2. CANDESARTAN CILEXETIL/HYDROCHLOROTHIAZIDE (ATACAND HCT) [Suspect]
     Dosage: 1DF= 8 MG/12.5 MG
     Route: 048
     Dates: start: 20070101, end: 20090624
  3. PLAVIX [Concomitant]
     Dosage: PLAVIX 75 UNITS NOS;TABS
  4. SOTALOL HCL [Concomitant]
     Dosage: 1DF= 80 UNITS NOS
  5. NEURONTIN [Concomitant]
     Dosage: 1DF=100 UNITS NOS;TABS
  6. TEMESTA [Concomitant]
     Dosage: 1DF=1 TABS

REACTIONS (1)
  - ECZEMA [None]
